FAERS Safety Report 6382251-2 (Version None)
Quarter: 2009Q3

REPORT INFORMATION
  Report Type: 
  Country: None (occurrence: None)
  Receive Date: 20090928
  Receipt Date: 20090928
  Transmission Date: 20100115
  Serious: Yes (Hospitalization)
  Sender: FDA-Public Use
  Company Number: None

PATIENT
  Sex: Male
  Weight: 76.2043 kg

DRUGS (2)
  1. PRILOSEC [Suspect]
     Dosage: DAILY CAPSULE
  2. NEXIUM [Suspect]
     Dosage: NEXIUM 40 MG DAILY CAPSULE

REACTIONS (1)
  - CHOLECYSTECTOMY [None]
